FAERS Safety Report 4274439-1 (Version None)
Quarter: 2004Q1

REPORT INFORMATION
  Report Type: 
  Country: None (occurrence: None)
  Receive Date: 20040120
  Receipt Date: 20030801
  Transmission Date: 20041129
  Serious: Yes (Other)
  Sender: FDA-Public Use
  Company Number: US-BRISTOL-MYERS SQUIBB COMPANY-12343299

PATIENT
  Age: 60 Year
  Sex: Female

DRUGS (3)
  1. IFEX [Suspect]
     Indication: UTERINE CANCER
     Route: 042
     Dates: start: 20030729, end: 20030731
  2. MESNA [Suspect]
     Indication: UTERINE CANCER
     Route: 042
     Dates: start: 20030819, end: 20030821
  3. ZOLOFT [Concomitant]

REACTIONS (1)
  - HAEMATURIA [None]
